FAERS Safety Report 8935487 (Version 1)
Quarter: 2012Q4

REPORT INFORMATION
  Report Type: Spontaneous
  Country: US (occurrence: None)
  Receive Date: 20121128
  Receipt Date: 20121128
  Transmission Date: 20130627
  Serious: Yes (Hospitalization)
  Sender: FDA-Public Use
  Company Number: None

PATIENT
  Age: 78 Year
  Sex: Male

DRUGS (17)
  1. COUMADIN [Suspect]
     Indication: ATRIAL FIBRILLATION
     Dosage: 5MG/2.5MG TWTHRS/SUNDAY PO
     Route: 048
  2. PLAVIX [Suspect]
     Indication: ATRIAL FIBRILLATION
     Route: 048
  3. ASA [Suspect]
     Indication: CORONARY ARTERY DISEASE
  4. KLOR-CON [Concomitant]
  5. CRESTOR [Concomitant]
  6. CRESTOR [Concomitant]
  7. ADVAIR [Concomitant]
  8. DISKUS [Concomitant]
  9. ATROVERT [Concomitant]
  10. HFS [Concomitant]
  11. DIGOXIN [Concomitant]
  12. PROZAC [Concomitant]
  13. CARDIZEM [Concomitant]
  14. JANUVIA [Concomitant]
  15. SPIRIVA [Concomitant]
  16. PROTONIX [Concomitant]
  17. LASIX [Concomitant]

REACTIONS (1)
  - Haematuria [None]
